FAERS Safety Report 5067235-9 (Version None)
Quarter: 2006Q3

REPORT INFORMATION
  Report Type: 
  Country: None (occurrence: None)
  Receive Date: 20060727
  Receipt Date: 20060718
  Transmission Date: 20061208
  Serious: Yes (Other)
  Sender: FDA-Public Use
  Company Number: 2006088965

PATIENT
  Sex: Female

DRUGS (2)
  1. ALDACTONE [Suspect]
     Indication: HYPERALDOSTERONISM
     Dosage: 25 MG DAILY, ORAL
     Route: 048
     Dates: start: 20060707
  2. AZOPT [Concomitant]
     Indication: OCULAR HYPERTENSION

REACTIONS (1)
  - INTRAOCULAR PRESSURE INCREASED [None]
